FAERS Safety Report 19155251 (Version 4)
Quarter: 2021Q3

REPORT INFORMATION
  Report Type: Spontaneous
  Country: US (occurrence: US)
  Receive Date: 20210419
  Receipt Date: 20210930
  Transmission Date: 20211014
  Serious: Yes (Hospitalization, Other)
  Sender: FDA-Public Use
  Company Number: 2020SGN02834

PATIENT
  Sex: Female

DRUGS (5)
  1. TUKYSA [Suspect]
     Active Substance: TUCATINIB
     Dosage: UNK
  2. CAPECITABINE. [Concomitant]
     Active Substance: CAPECITABINE
     Indication: BREAST CANCER FEMALE
  3. TUKYSA [Suspect]
     Active Substance: TUCATINIB
     Indication: BREAST CANCER FEMALE
     Dosage: UNK
  4. TUKYSA [Suspect]
     Active Substance: TUCATINIB
     Dosage: UNK
  5. TUKYSA [Suspect]
     Active Substance: TUCATINIB
     Dosage: UNK

REACTIONS (8)
  - Disease progression [Unknown]
  - Seizure [Unknown]
  - Palmar-plantar erythrodysaesthesia syndrome [Unknown]
  - Craniotomy [Unknown]
  - Surgery [Unknown]
  - Brain operation [Unknown]
  - Encephalitis [Unknown]
  - Diarrhoea [Unknown]
